FAERS Safety Report 15498956 (Version 1)
Quarter: 2018Q4

REPORT INFORMATION
  Report Type: Spontaneous
  Country: US (occurrence: US)
  Receive Date: 20181005
  Receipt Date: 20181005
  Transmission Date: 20190205
  Serious: Yes (Death, Life-Threatening, Hospitalization)
  Sender: FDA-Public Use
  Company Number: None

PATIENT
  Age: 80 Year
  Sex: Female
  Weight: 63.1 kg

DRUGS (2)
  1. ELIQUIS [Suspect]
     Active Substance: APIXABAN
     Indication: CEREBROVASCULAR ACCIDENT
     Route: 048
  2. ELIQUIS [Suspect]
     Active Substance: APIXABAN
     Indication: ATRIAL FIBRILLATION
     Route: 048

REACTIONS (3)
  - Cerebrovascular accident [None]
  - Cerebral haemorrhage [None]
  - Facial paralysis [None]

NARRATIVE: CASE EVENT DATE: 20181004
